FAERS Safety Report 8027350-4 (Version None)
Quarter: 2011Q4

REPORT INFORMATION
  Report Type: 
  Country: None (occurrence: None)
  Receive Date: 20111130
  Receipt Date: 20110801
  Transmission Date: 20120403
  Serious: Yes (Hospitalization, Other)
  Sender: FDA-Public Use
  Company Number: US201108000173

PATIENT
  Age: 57 Year

DRUGS (9)
  1. METFORMIN HCL [Concomitant]
  2. SEROQUEL [Concomitant]
  3. KLONOPIN [Concomitant]
  4. ASPIRIN [Concomitant]
  5. BYETTA [Suspect]
     Indication: DIABETES MELLITUS
     Dosage: 10 UG, BID
     Dates: start: 20061116, end: 20080301
  6. HYZAAR [Concomitant]
  7. GLUCOTROL [Concomitant]
  8. CYMBALTA [Concomitant]
  9. MEVACOR [Concomitant]

REACTIONS (1)
  - PANCREATITIS [None]
